FAERS Safety Report 10716283 (Version 2)
Quarter: 2015Q1

REPORT INFORMATION
  Report Type: Spontaneous
  Country: CA (occurrence: CA)
  Receive Date: 20150116
  Receipt Date: 20150122
  Transmission Date: 20150721
  Serious: Yes (Other)
  Sender: FDA-Public Use
  Company Number: CA-BAYER-2014-182450

PATIENT
  Age: 26 Year
  Sex: Female

DRUGS (1)
  1. MIRENA [Suspect]
     Active Substance: LEVONORGESTREL
     Indication: CONTRACEPTION
     Dosage: 20 MCG/24HR, CONT
     Route: 015
     Dates: start: 201312

REACTIONS (4)
  - Ruptured ectopic pregnancy [None]
  - Uterine perforation [None]
  - Ectopic pregnancy with contraceptive device [None]
  - Device dislocation [None]

NARRATIVE: CASE EVENT DATE: 201403
